FAERS Safety Report 8256927-6 (Version None)
Quarter: 2012Q2

REPORT INFORMATION
  Report Type: 
  Country: None (occurrence: None)
  Receive Date: 20120403
  Receipt Date: 20120328
  Transmission Date: 20120825
  Serious: No
  Sender: FDA-Public Use
  Company Number: NZ-JNJFOC-20120400683

PATIENT
  Sex: Male

DRUGS (2)
  1. REMICADE [Suspect]
     Indication: CROHN'S DISEASE
     Route: 042
     Dates: start: 20111101
  2. AZATHIOPRINE [Suspect]
     Indication: CROHN'S DISEASE
     Route: 065
     Dates: start: 20111101, end: 20120301

REACTIONS (2)
  - HERPES ZOSTER [None]
  - BUTTERFLY RASH [None]
